FAERS Safety Report 17813626 (Version 1)
Quarter: 2020Q2

REPORT INFORMATION
  Report Type: Spontaneous
  Country: FR (occurrence: FR)
  Receive Date: 20200521
  Receipt Date: 20200521
  Transmission Date: 20200714
  Serious: Yes (Death)
  Sender: FDA-Public Use
  Company Number: FR-NAPPMUNDI-GBR-2020-0076767

PATIENT
  Age: 65 Year
  Sex: Male

DRUGS (1)
  1. OXYCODONE HYDROCHLORIDE. [Suspect]
     Active Substance: OXYCODONE HYDROCHLORIDE
     Indication: DOSE CALCULATION ERROR
     Dosage: 86.4 MG, Q1H
     Route: 042
     Dates: start: 20200305, end: 20200305

REACTIONS (5)
  - Incorrect dose administered [Fatal]
  - Dose calculation error [Fatal]
  - Overdose [Fatal]
  - Product preparation error [Fatal]
  - Acute respiratory failure [Fatal]

NARRATIVE: CASE EVENT DATE: 20200305
